FAERS Safety Report 6613695-9 (Version None)
Quarter: 2010Q1

REPORT INFORMATION
  Report Type: 
  Country: None (occurrence: None)
  Receive Date: 20100226
  Receipt Date: 20100218
  Transmission Date: 20100710
  Serious: Yes (Other)
  Sender: FDA-Public Use
  Company Number: 2010SP010463

PATIENT
  Age: 56 Year
  Sex: Male

DRUGS (4)
  1. RIBAVIRIN [Suspect]
     Indication: HEPATITIS C
     Dosage: PO
     Route: 048
     Dates: end: 20070101
  2. RIBAVIRIN [Suspect]
     Indication: HEPATITIS C
     Dosage: PO
     Route: 048
     Dates: start: 20091128
  3. PEGASYS [Suspect]
     Indication: HEPATITIS C
     Dates: end: 20070101
  4. PEGASYS [Suspect]
     Indication: HEPATITIS C
     Dates: start: 20091128

REACTIONS (1)
  - DIABETES MELLITUS [None]
